FAERS Safety Report 16787543 (Version 3)
Quarter: 2019Q4

REPORT INFORMATION
  Report Type: Report from Study
  Country: CA (occurrence: CA)
  Receive Date: 20190909
  Receipt Date: 20191211
  Transmission Date: 20200122
  Serious: Yes (Hospitalization, Other)
  Sender: FDA-Public Use
  Company Number: CA-AMERICAN REGENT INC-2019001938

PATIENT
  Age: 68 Year
  Sex: Female

DRUGS (5)
  1. VENOFER [Suspect]
     Active Substance: IRON SUCROSE
     Indication: PRODUCT USED FOR UNKNOWN INDICATION
     Dosage: UNK
     Route: 065
  2. SANDOSTATIN [Suspect]
     Active Substance: OCTREOTIDE ACETATE
     Indication: ANAEMIA
     Dosage: 20 MILLIGRAM, 1 EVERY 1 MONTH
     Route: 030
     Dates: start: 20151212
  3. SANDOSTATIN [Suspect]
     Active Substance: OCTREOTIDE ACETATE
     Indication: ANAEMIA
     Dosage: 50 MICROGRAM 2 EVERY 1 DAY(S) X 1 MONTH
     Route: 058
  4. SANDOSTATIN [Suspect]
     Active Substance: OCTREOTIDE ACETATE
     Indication: ANAEMIA
     Dosage: 100 MICROGRAM 2 EVERY 1 DAY(S)
     Route: 058
  5. VENOFER [Suspect]
     Active Substance: IRON SUCROSE
     Dosage: UNK, EVERY MONTH INSTEAD OF EVERY 3-4 MONTHS
     Route: 065
     Dates: start: 2016

REACTIONS (4)
  - Urinary tract infection [Unknown]
  - Large intestinal haemorrhage [Unknown]
  - Skin infection [Unknown]
  - Asthenia [Unknown]

NARRATIVE: CASE EVENT DATE: 2016
